FAERS Safety Report 21890725 (Version 2)
Quarter: 2023Q1

REPORT INFORMATION
  Report Type: Report from Study
  Country: US (occurrence: US)
  Receive Date: 20230120
  Receipt Date: 20230209
  Transmission Date: 20230417
  Serious: No
  Sender: FDA-Public Use
  Company Number: US-002147023-NVSC2023US009534

PATIENT
  Age: 24 Year
  Sex: Female

DRUGS (4)
  1. FINGOLIMOD HYDROCHLORIDE [Suspect]
     Active Substance: FINGOLIMOD HYDROCHLORIDE
     Indication: Multiple sclerosis
     Dosage: CODE NOT BROKEN
     Route: 048
     Dates: start: 2015
  2. INTERFERON BETA-1A [Suspect]
     Active Substance: INTERFERON BETA-1A
     Indication: Multiple sclerosis
     Dosage: CODE NOT BROKEN
     Route: 048
     Dates: start: 2015
  3. INVESTIGATIONAL PRODUCT [Suspect]
     Active Substance: INVESTIGATIONAL PRODUCT
     Indication: Multiple sclerosis
     Dosage: CODE NOT BROKEN
     Route: 048
     Dates: start: 2015
  4. PLACEBO [Suspect]
     Active Substance: UNSPECIFIED INGREDIENT
     Indication: Multiple sclerosis
     Dosage: CODE NOT BROKEN
     Route: 048
     Dates: start: 2015

REACTIONS (1)
  - Maternal exposure during pregnancy [Unknown]
